FAERS Safety Report 8500586-1 (Version None)
Quarter: 2012Q3

REPORT INFORMATION
  Report Type: 
  Country: None (occurrence: None)
  Receive Date: 20120710
  Receipt Date: 20120626
  Transmission Date: 20120928
  Serious: No
  Sender: FDA-Public Use
  Company Number: US-ASTRAZENECA-2012SE43158

PATIENT
  Sex: Male

DRUGS (1)
  1. CRESTOR [Suspect]
     Indication: BLOOD PRESSURE
     Route: 048

REACTIONS (3)
  - OFF LABEL USE [None]
  - HEART RATE DECREASED [None]
  - THERAPEUTIC RESPONSE UNEXPECTED [None]
